FAERS Safety Report 5701527-2 (Version None)
Quarter: 2008Q2

REPORT INFORMATION
  Report Type: 
  Country: None (occurrence: None)
  Receive Date: 20080410
  Receipt Date: 20080331
  Transmission Date: 20081010
  Serious: Yes (Hospitalization)
  Sender: FDA-Public Use
  Company Number: US-BAXTER-2008BH002503

PATIENT
  Age: 71 Year
  Sex: Male
  Weight: 91 kg

DRUGS (66)
  1. EXTRANEAL [Suspect]
     Indication: CARDIAC FAILURE CONGESTIVE
     Route: 033
     Dates: start: 20080313, end: 20080301
  2. ACETAMINOPHEN [Concomitant]
     Indication: PAIN
     Route: 065
     Dates: start: 20080316
  3. ACETAMINOPHEN [Concomitant]
     Route: 065
     Dates: start: 20080316
  4. ALLOPURINOL [Concomitant]
     Indication: GOUT
     Route: 048
  5. AMIODARONE HCL [Concomitant]
     Indication: ATRIAL FIBRILLATION
     Route: 048
     Dates: start: 20071105
  6. ASPIRIN [Concomitant]
     Indication: CORONARY ARTERY DISEASE
     Route: 048
  7. CALCITRIOL [Concomitant]
     Indication: HYPERPARATHYROIDISM
     Route: 048
     Dates: start: 20071027
  8. CARVEDILOL [Concomitant]
     Indication: CARDIAC FAILURE CONGESTIVE
     Route: 048
     Dates: start: 20071105
  9. DEXTROSE 5% [Concomitant]
     Indication: DRUG USE FOR UNKNOWN INDICATION
     Route: 042
     Dates: start: 20080316
  10. DEXTROSE 50% INJ 12.5G [Concomitant]
     Indication: HYPOGLYCAEMIA
     Route: 042
     Dates: start: 20080316
  11. POTASSIUM CHLORIDE [Concomitant]
     Indication: CARDIAC FAILURE CONGESTIVE
     Route: 048
     Dates: start: 20071214
  12. SODIUM CHLORIDE [Concomitant]
     Indication: INTRAVENOUS CATHETER MANAGEMENT
     Route: 042
     Dates: start: 20080316
  13. SPIRONOLACTONE [Concomitant]
     Indication: CARDIAC FAILURE CONGESTIVE
     Route: 048
     Dates: start: 20071214
  14. TEMAZEPAM [Concomitant]
     Indication: INSOMNIA
     Route: 048
     Dates: start: 20080317
  15. TORSEMIDE [Concomitant]
     Indication: CARDIAC FAILURE CONGESTIVE
     Route: 048
     Dates: start: 20071214, end: 20080312
  16. VICODIN [Concomitant]
     Indication: PAIN
     Route: 048
     Dates: start: 20080316
  17. VICODIN [Concomitant]
     Route: 048
     Dates: start: 20080316
  18. WARFARIN SODIUM [Concomitant]
     Indication: DRUG USE FOR UNKNOWN INDICATION
     Route: 048
     Dates: start: 20080316
  19. WARFARIN SODIUM [Concomitant]
     Route: 048
     Dates: start: 20080319
  20. HUMULIN N [Concomitant]
     Indication: DRUG USE FOR UNKNOWN INDICATION
     Route: 058
     Dates: start: 20080316, end: 20080318
  21. POTASSIUM CHLORIDE [Concomitant]
     Indication: DRUG USE FOR UNKNOWN INDICATION
     Route: 048
     Dates: start: 20080316, end: 20080317
  22. WARFARIN SODIUM [Concomitant]
     Indication: ATRIAL FIBRILLATION
     Route: 048
     Dates: start: 20071114, end: 20080124
  23. WARFARIN SODIUM [Concomitant]
     Route: 048
     Dates: start: 20080317, end: 20080317
  24. DIGOXIN [Concomitant]
     Indication: CARDIAC FAILURE CONGESTIVE
     Route: 048
     Dates: start: 20070716, end: 20080116
  25. HUMULIN N [Concomitant]
     Route: 058
     Dates: start: 20080317
  26. HUMULIN R [Concomitant]
     Indication: DIABETES MELLITUS
     Route: 058
     Dates: start: 20071214, end: 20080123
  27. PANTOPRAZOLE SODIUM [Concomitant]
     Indication: PEPTIC ULCER
     Route: 048
  28. HYDRALAZINE HCL [Concomitant]
     Indication: CARDIAC FAILURE CONGESTIVE
     Route: 048
     Dates: start: 20071214
  29. HUMULIN N [Concomitant]
     Indication: DIABETES MELLITUS
     Route: 058
     Dates: start: 20071214, end: 20080123
  30. LACTULOSE [Concomitant]
     Indication: CONSTIPATION
     Route: 048
     Dates: start: 20080214
  31. MORPHINE [Concomitant]
     Indication: DRUG USE FOR UNKNOWN INDICATION
     Route: 042
     Dates: start: 20080316
  32. DOCUSATE SODIUM [Concomitant]
     Indication: DRUG USE FOR UNKNOWN INDICATION
     Route: 048
     Dates: start: 20080316
  33. METOCLOPRAMIDE [Concomitant]
     Indication: DRUG USE FOR UNKNOWN INDICATION
     Route: 042
     Dates: start: 20080316
  34. ISOSORBIDE MONONITRATE [Concomitant]
     Indication: CARDIAC FAILURE CONGESTIVE
     Route: 048
     Dates: start: 20071214
  35. LEVITRA [Concomitant]
     Indication: ERECTILE DYSFUNCTION
     Route: 048
     Dates: start: 20070208
  36. WELCHOL [Concomitant]
     Indication: HYPERLIPIDAEMIA
     Route: 048
  37. MAGNESIUM [Concomitant]
     Indication: HYPOMAGNESAEMIA
     Route: 048
  38. NITROLINGUAL [Concomitant]
     Indication: CORONARY ARTERY DISEASE
     Route: 060
  39. VITAMIN E [Concomitant]
     Indication: ROUTINE HEALTH MAINTENANCE
     Route: 048
     Dates: end: 20080116
  40. CENTRUM SILVER [Concomitant]
     Indication: ROUTINE HEALTH MAINTENANCE
     Route: 048
     Dates: end: 20080314
  41. ASCORBIC ACID [Concomitant]
     Indication: ROUTINE HEALTH MAINTENANCE
     Route: 048
  42. COENZYME QID [Concomitant]
     Indication: ROUTINE HEALTH MAINTENANCE
     Route: 048
  43. METOLAZONE [Concomitant]
     Indication: CARDIAC FAILURE CONGESTIVE
     Route: 048
     Dates: start: 20070721, end: 20080312
  44. GENTAMICIN [Concomitant]
     Indication: THERAPEUTIC SKIN CARE TOPICAL
     Route: 061
     Dates: start: 20080204
  45. ACETAMINOPHEN AND HYDROCODONE BITARTRATE [Concomitant]
     Indication: PAIN
     Route: 048
     Dates: start: 20080129, end: 20080130
  46. HUMULIN R [Concomitant]
     Route: 058
     Dates: start: 20071214
  47. HUMULIN N [Concomitant]
     Route: 058
     Dates: start: 20071023, end: 20080131
  48. HUMULIN N [Concomitant]
     Route: 058
     Dates: start: 20080123, end: 20080131
  49. HUMULIN R [Concomitant]
     Route: 058
     Dates: start: 20080123
  50. POTASSIUM CHLORIDE [Concomitant]
     Indication: MINERAL SUPPLEMENTATION
     Route: 048
     Dates: start: 20080128, end: 20080128
  51. HUMULIN N [Concomitant]
     Route: 058
     Dates: start: 20080131
  52. HUMULIN N [Concomitant]
     Route: 058
     Dates: start: 20080131
  53. WARFARIN SODIUM [Concomitant]
     Route: 048
     Dates: start: 20080130, end: 20080311
  54. WARFARIN SODIUM [Concomitant]
     Route: 048
     Dates: start: 20080130, end: 20080311
  55. WARFARIN SODIUM [Concomitant]
     Route: 048
     Dates: start: 20080311
  56. WARFARIN SODIUM [Concomitant]
     Route: 048
     Dates: start: 20080311
  57. METOLAZONE [Concomitant]
     Route: 048
     Dates: start: 20080211, end: 20080212
  58. TORSEMIDE [Concomitant]
     Route: 048
     Dates: start: 20080211, end: 20080212
  59. WARFARIN SODIUM [Concomitant]
     Route: 048
     Dates: start: 20071114, end: 20080124
  60. TORSEMIDE [Concomitant]
     Route: 048
     Dates: start: 20080314
  61. METOLAZONE [Concomitant]
     Route: 048
     Dates: start: 20080101, end: 20080101
  62. TORSEMIDE [Concomitant]
     Route: 048
     Dates: start: 20080101, end: 20080101
  63. METOLAZONE [Concomitant]
     Route: 048
     Dates: start: 20080201, end: 20080201
  64. TORSEMIDE [Concomitant]
     Route: 048
     Dates: start: 20080201, end: 20080201
  65. METOLAZONE [Concomitant]
     Route: 048
     Dates: start: 20080301, end: 20080301
  66. TORSEMIDE [Concomitant]
     Route: 048
     Dates: start: 20080301, end: 20080301

REACTIONS (1)
  - PERITONITIS [None]
